FAERS Safety Report 6375710-X (Version None)
Quarter: 2009Q3

REPORT INFORMATION
  Report Type: 
  Country: None (occurrence: None)
  Receive Date: 20090924
  Receipt Date: 20090910
  Transmission Date: 20100115
  Serious: Yes (Death)
  Sender: FDA-Public Use
  Company Number: DE-MYLANLABS-2009S1015934

PATIENT
  Age: 58 Year
  Sex: Male

DRUGS (7)
  1. TRAMADOL [Suspect]
     Indication: DRUG USE FOR UNKNOWN INDICATION
     Dosage: DOSAGE NOT STATED
  2. TRIMIPRAMINE MALEATE [Concomitant]
     Dosage: DOSAGE NOT STATED
  3. NORDAZEPAM [Concomitant]
     Dosage: DOSAGE NOT STATED
  4. BROMAZEPAM [Concomitant]
     Dosage: DOSAGE NOT STATED
  5. DIAZEPAM [Concomitant]
     Dosage: DOSAGE NOT STATED
  6. METHADONE [Concomitant]
     Dosage: DOSAGE NOT STATED
  7. DOXEPIN HCL [Concomitant]
     Dosage: DOSAGE NOT STATED
     Route: 048

REACTIONS (2)
  - ANALGESIC DRUG LEVEL INCREASED [None]
  - DRUG TOXICITY [None]
